FAERS Safety Report 7647738-0 (Version None)
Quarter: 2011Q3

REPORT INFORMATION
  Report Type: 
  Country: None (occurrence: None)
  Receive Date: 20110801
  Receipt Date: 20110801
  Transmission Date: 20111222
  Serious: No
  Sender: FDA-Public Use
  Company Number: None

PATIENT
  Sex: Female
  Weight: 90.264 kg

DRUGS (9)
  1. ASPIRIN [Concomitant]
  2. FUROSEMIDE [Concomitant]
  3. JANUVIA [Concomitant]
  4. METOPROLOL TARTRATE [Concomitant]
  5. PRAVASTATIN [Concomitant]
  6. PRILOSEC OTC [Concomitant]
  7. ACTOS [Suspect]
     Indication: TYPE 2 DIABETES MELLITUS
     Dosage: 45 MG
     Route: 048
     Dates: start: 20101108, end: 20110725
  8. GLIMEPIRIDE [Concomitant]
  9. LOSARTAN POTASSIUM [Concomitant]

REACTIONS (1)
  - WEIGHT INCREASED [None]
